FAERS Safety Report 10184094 (Version 1)
Quarter: 2014Q2

REPORT INFORMATION
  Report Type: Spontaneous
  Country: US (occurrence: US)
  Receive Date: 20140520
  Receipt Date: 20140520
  Transmission Date: 20141212
  Serious: No
  Sender: FDA-Public Use
  Company Number: US-ASTRAZENECA-2013SE62576

PATIENT
  Sex: Male

DRUGS (2)
  1. ENTOCORT EC [Suspect]
     Indication: COLITIS
     Route: 048
  2. ENTOCORT EC [Suspect]
     Indication: COLITIS
     Route: 048

REACTIONS (2)
  - Diarrhoea [Unknown]
  - Weight decreased [Unknown]
